FAERS Safety Report 6314164-6 (Version None)
Quarter: 2009Q3

REPORT INFORMATION
  Report Type: 
  Country: None (occurrence: None)
  Receive Date: 20090818
  Receipt Date: 20090813
  Transmission Date: 20100115
  Serious: Yes (Death, Hospitalization)
  Sender: FDA-Public Use
  Company Number: PHEH2009US06863

PATIENT
  Sex: Female
  Weight: 85.3 kg

DRUGS (1)
  1. EXJADE [Suspect]
     Dosage: UNK

REACTIONS (2)
  - BACTERAEMIA [None]
  - UPPER GASTROINTESTINAL HAEMORRHAGE [None]
